FAERS Safety Report 26179852 (Version 1)
Quarter: 2025Q4

REPORT INFORMATION
  Report Type: Spontaneous
  Country: SA (occurrence: SA)
  Receive Date: 20251219
  Receipt Date: 20251219
  Transmission Date: 20260118
  Serious: Yes (Hospitalization)
  Sender: ELI LILLY AND COMPANY
  Company Number: SA-ELI_LILLY_AND_COMPANY-SA202512012112

PATIENT
  Age: 66 Year
  Sex: Male
  Weight: 186 kg

DRUGS (12)
  1. TIRZEPATIDE [Interacting]
     Active Substance: TIRZEPATIDE
     Indication: Weight decreased
     Dosage: 2.5 MG, WEEKLY (1/W)
     Route: 058
  2. TIRZEPATIDE [Interacting]
     Active Substance: TIRZEPATIDE
     Dosage: 5 MG, WEEKLY (1/W)
     Route: 058
  3. TIRZEPATIDE [Interacting]
     Active Substance: TIRZEPATIDE
     Dosage: 7.5 MG, WEEKLY (1/W)
     Route: 058
  4. TIRZEPATIDE [Interacting]
     Active Substance: TIRZEPATIDE
     Dosage: 10 MG, WEEKLY (1/W)
     Route: 058
  5. TIRZEPATIDE [Interacting]
     Active Substance: TIRZEPATIDE
     Dosage: 12.5 MG, WEEKLY (1/W)
     Route: 065
  6. SPIRONOLACTONE [Interacting]
     Active Substance: SPIRONOLACTONE
     Indication: Hypertension
     Dosage: 25 MG, DAILY
     Route: 065
  7. PERINDOPRIL [Interacting]
     Active Substance: PERINDOPRIL
     Indication: Hypertension
     Dosage: 10 MG, UNKNOWN
     Route: 065
  8. BISOPROLOL [Interacting]
     Active Substance: BISOPROLOL
     Indication: Hypertension
     Dosage: 5 MG, UNKNOWN
     Route: 065
  9. METFORMIN [Suspect]
     Active Substance: METFORMIN HYDROCHLORIDE
     Indication: Glucose tolerance impaired
     Dosage: 750 MG, DAILY
     Route: 065
  10. LEVOTHYROXINE [Concomitant]
     Active Substance: LEVOTHYROXINE
     Indication: Hypothyroidism
     Dosage: 125 UG, DAILY
     Route: 065
  11. ALFUZOSIN [Concomitant]
     Active Substance: ALFUZOSIN
     Indication: Benign prostatic hyperplasia
     Dosage: 10 MG, DAILY
     Route: 065
  12. ATORVASTATIN [Concomitant]
     Active Substance: ATORVASTATIN
     Indication: Dyslipidaemia
     Dosage: 20 MG, DAILY
     Route: 065

REACTIONS (6)
  - Hyperkalaemia [Recovered/Resolved]
  - Infection [Unknown]
  - Acute kidney injury [Recovered/Resolved]
  - Drug interaction [Unknown]
  - Metabolic acidosis [Recovered/Resolved]
  - Inappropriate schedule of product administration [Unknown]
